FAERS Safety Report 9369720 (Version 2)
Quarter: 2013Q3

REPORT INFORMATION
  Report Type: Spontaneous
  Country: IL (occurrence: IL)
  Receive Date: 20130626
  Receipt Date: 20130731
  Transmission Date: 20140515
  Serious: Yes (Hospitalization)
  Sender: FDA-Public Use
  Company Number: IL-SANOFI-AVENTIS-2013SA062747

PATIENT
  Sex: Female

DRUGS (3)
  1. ARAVA [Suspect]
     Indication: RHEUMATOID ARTHRITIS
     Route: 065
     Dates: start: 2009, end: 201305
  2. CORTICOSTEROID NOS [Concomitant]
     Dosage: HIGH
  3. MABTHERA [Concomitant]

REACTIONS (2)
  - Splenomegaly [Recovered/Resolved]
  - Pancytopenia [Recovered/Resolved]
